FAERS Safety Report 4944300-5 (Version None)
Quarter: 2006Q1

REPORT INFORMATION
  Report Type: 
  Country: None (occurrence: None)
  Receive Date: 20060315
  Receipt Date: 20060308
  Transmission Date: 20060701
  Serious: Yes (Other)
  Sender: FDA-Public Use
  Company Number: AU-GLAXOSMITHKLINE-B0415787A

PATIENT
  Sex: Male

DRUGS (1)
  1. AVANDIA [Suspect]

REACTIONS (4)
  - AGGRESSION [None]
  - AMNESIA [None]
  - PARANOIA [None]
  - PSYCHOTIC DISORDER [None]
